FAERS Safety Report 13566440 (Version 2)
Quarter: 2017Q3

REPORT INFORMATION
  Report Type: Report from Study
  Country: None (occurrence: NL)
  Receive Date: 20170522
  Receipt Date: 20170705
  Transmission Date: 20171127
  Serious: Yes (Hospitalization)
  Sender: FDA-Public Use
  Company Number: NL-ABBVIE-17K-114-1982160-00

PATIENT
  Sex: Female
  Weight: 47 kg

DRUGS (1)
  1. DUODOPA [Suspect]
     Active Substance: CARBIDOPA\LEVODOPA
     Indication: PARKINSON^S DISEASE
     Dosage: MORNING DOSE: 8.0, CONTINUOUS DOSE:5.9, EXTRA DOSE: 3.0,  NIGHT DOSE:  2.9-3.0
     Route: 050
     Dates: start: 20151214

REACTIONS (4)
  - Mucosal dryness [Recovering/Resolving]
  - Feeling hot [Not Recovered/Not Resolved]
  - Swollen tongue [Recovering/Resolving]
  - Dry mouth [Recovering/Resolving]
